FAERS Safety Report 6865948-7 (Version None)
Quarter: 2010Q3

REPORT INFORMATION
  Report Type: 
  Country: None (occurrence: None)
  Receive Date: 20100719
  Receipt Date: 20100707
  Transmission Date: 20110219
  Serious: Yes (Other)
  Sender: FDA-Public Use
  Company Number: CIP10001611

PATIENT
  Sex: Female

DRUGS (3)
  1. ACTONEL [Suspect]
     Dosage: ORAL
     Route: 048
  2. CORTICOSTEROIDS [Concomitant]
  3. METHOTREXATE [Concomitant]

REACTIONS (1)
  - AUDITORY MEATUS EXTERNAL EROSION [None]
